FAERS Safety Report 6289112-8 (Version None)
Quarter: 2009Q3

REPORT INFORMATION
  Report Type: 
  Country: None (occurrence: None)
  Receive Date: 20090729
  Receipt Date: 20090720
  Transmission Date: 20100115
  Serious: Yes (Hospitalization)
  Sender: FDA-Public Use
  Company Number: DE-ASTRAZENECA-2009PK01556

PATIENT
  Age: 72 Year
  Sex: Female

DRUGS (6)
  1. SEROQUEL [Suspect]
     Indication: DEPRESSION
     Route: 048
     Dates: start: 20081223, end: 20090101
  2. REMERGIL [Suspect]
     Route: 048
     Dates: start: 20071001, end: 20081231
  3. SERTRALINE [Concomitant]
     Route: 048
     Dates: start: 20081229
  4. DOMPERIDON [Concomitant]
     Route: 048
     Dates: start: 20070101, end: 20090215
  5. ZOPICLON [Concomitant]
     Route: 048
     Dates: start: 20081223
  6. PARIET [Concomitant]
     Route: 048

REACTIONS (2)
  - NEUTROPENIA [None]
  - THROMBOCYTOPENIA [None]
